FAERS Safety Report 4789353-2 (Version None)
Quarter: 2005Q3

REPORT INFORMATION
  Report Type: 
  Country: None (occurrence: None)
  Receive Date: 20050929
  Receipt Date: 20050815
  Transmission Date: 20060218
  Serious: No
  Sender: FDA-Public Use
  Company Number: 05P-163-0308320-00

PATIENT
  Age: 77 Year
  Sex: Female
  Weight: 68.9467 kg

DRUGS (8)
  1. HUMIRA [Suspect]
     Indication: RHEUMATOID ARTHRITIS
     Dosage: 40 MG, 1 IN 2 WK, SUBCUTANEOUS
     Route: 058
     Dates: start: 20040804, end: 20050601
  2. LOSARTAN POTASSIUM [Concomitant]
  3. ZOCOR [Concomitant]
  4. PREDNISONE [Concomitant]
  5. ATENOLOL [Concomitant]
  6. FLUOXETINE HYDROCHLORIDE [Concomitant]
  7. COUMADIN [Concomitant]
  8. CALCIUM GLUCONATE [Concomitant]

REACTIONS (1)
  - DRUG INEFFECTIVE [None]
